FAERS Safety Report 8843589 (Version 2)
Quarter: 2013Q1

REPORT INFORMATION
  Report Type: Spontaneous
  Country: ES (occurrence: ES)
  Receive Date: 20121016
  Receipt Date: 20130110
  Transmission Date: 20140127
  Serious: Yes (Other)
  Sender: FDA-Public Use
  Company Number: ES-ALLERGAN-1209523US

PATIENT
  Age: 83 Year
  Sex: Male

DRUGS (14)
  1. OZURDEX [Suspect]
     Indication: MACULAR OEDEMA
     Dosage: 0.7 MG, SINGLE
     Route: 031
  2. OZURDEX [Suspect]
     Dosage: 0.7 MG, SINGLE
     Route: 031
  3. OZURDEX [Suspect]
     Dosage: 0.7 MG, SINGLE
     Route: 031
  4. OZURDEX [Suspect]
     Dosage: 0.7 MG, SINGLE
     Route: 031
  5. OZURDEX [Suspect]
     Dosage: 0.7 MG, SINGLE
     Route: 031
  6. OZURDEX [Suspect]
     Dosage: 0.7 MG, SINGLE
     Route: 031
  7. OZURDEX [Suspect]
     Dosage: 0.7 MG, SINGLE
     Route: 031
  8. REPAGLINIDA [Concomitant]
     Indication: PRODUCT USED FOR UNKNOWN INDICATION
     Route: 048
  9. METFORMIN [Concomitant]
     Indication: PRODUCT USED FOR UNKNOWN INDICATION
     Route: 048
  10. CLOPIDOGREL [Concomitant]
     Indication: PRODUCT USED FOR UNKNOWN INDICATION
     Route: 048
  11. VALSARTAN [Concomitant]
     Indication: PRODUCT USED FOR UNKNOWN INDICATION
     Route: 048
  12. BISOPROLOL [Concomitant]
     Indication: PRODUCT USED FOR UNKNOWN INDICATION
     Route: 048
  13. ASA [Concomitant]
     Indication: PRODUCT USED FOR UNKNOWN INDICATION
     Route: 048
  14. NITROGLYCERIN [Concomitant]
     Indication: PRODUCT USED FOR UNKNOWN INDICATION
     Route: 062

REACTIONS (4)
  - Retinal detachment [Recovering/Resolving]
  - Vitreous haemorrhage [Recovering/Resolving]
  - Conjunctival haemorrhage [Recovering/Resolving]
  - Complication of device insertion [Unknown]
